FAERS Safety Report 4837334-2 (Version None)
Quarter: 2005Q4

REPORT INFORMATION
  Report Type: 
  Country: None (occurrence: None)
  Receive Date: 20051128
  Receipt Date: 20051116
  Transmission Date: 20060501
  Serious: Yes (Hospitalization)
  Sender: FDA-Public Use
  Company Number: SE-JNJFOC-20051103840

PATIENT
  Age: 62 Year
  Sex: Male

DRUGS (12)
  1. REMICADE [Suspect]
     Route: 042
  2. METOPROLOL SUCCINATE [Concomitant]
  3. FOSAMAX [Concomitant]
  4. PLENDIL [Concomitant]
  5. ASACOL [Concomitant]
  6. KALCIPOS-D [Concomitant]
  7. KALCIPOS-D [Concomitant]
  8. BRICANYL [Concomitant]
  9. FOLACIN [Concomitant]
  10. FOLACIN [Concomitant]
  11. PREDNISOLONE [Concomitant]
  12. PULMICORT [Concomitant]

REACTIONS (1)
  - WOLFF-PARKINSON-WHITE SYNDROME [None]
